FAERS Safety Report 4582447-6 (Version None)
Quarter: 2005Q1

REPORT INFORMATION
  Report Type: 
  Country: None (occurrence: None)
  Receive Date: 20050125
  Receipt Date: 20041004
  Transmission Date: 20050727
  Serious: No
  Sender: FDA-Public Use
  Company Number: REM_00070_2004

PATIENT
  Age: 28 Year
  Sex: Female
  Weight: 70.3075 kg

DRUGS (5)
  1. REMODULIN [Suspect]
     Indication: PULMONARY HYPERTENSION
     Dosage: 20 NG/KG/MIN CONTINOUS SC
     Route: 058
     Dates: start: 20040716, end: 20041018
  2. REMODULIN [Suspect]
     Indication: PULMONARY HYPERTENSION
     Dosage: 20 NG/KG/MIN CONTINOUS SC
     Route: 058
     Dates: start: 20041019
  3. TRACLEER [Suspect]
     Indication: PULMONARY HYPERTENSION
     Dosage: 125 MG BID PO
     Route: 048
     Dates: start: 20040827
  4. Z PAK [Suspect]
     Dosage: 500 MG QD PO
     Route: 048
     Dates: start: 20040906, end: 20040906
  5. Z PAK [Suspect]
     Dosage: 250 MG QD PO
     Route: 048
     Dates: start: 20040907, end: 20040910

REACTIONS (2)
  - PRURITUS [None]
  - RASH [None]
